FAERS Safety Report 8355494-6 (Version None)
Quarter: 2012Q2

REPORT INFORMATION
  Report Type: 
  Country: None (occurrence: None)
  Receive Date: 20120512
  Receipt Date: 20120423
  Transmission Date: 20120825
  Serious: Yes (Death)
  Sender: FDA-Public Use
  Company Number: PHHY2010KR27157

PATIENT
  Sex: Female
  Weight: 57 kg

DRUGS (2)
  1. EXJADE [Suspect]
     Indication: ACUTE MYELOID LEUKAEMIA
     Dosage: 15 MG/KG, UNK
     Route: 048
     Dates: start: 20091123
  2. EXJADE [Suspect]
     Dosage: 15 MG/KG, UNK
     Dates: start: 20091209, end: 20100316

REACTIONS (1)
  - DEATH [None]
